FAERS Safety Report 10469152 (Version 2)
Quarter: 2014Q4

REPORT INFORMATION
  Report Type: Spontaneous
  Country: JP (occurrence: None)
  Receive Date: 20140919
  Receipt Date: 20141030
  Transmission Date: 20150528
  Serious: Yes (Other)
  Sender: FDA-Public Use
  Company Number: 2014JP000612

PATIENT
  Age: 43 Year
  Sex: Male
  Weight: 74 kg

DRUGS (11)
  1. REGPARA (CINACALCET HYDROCHLORIDE) [Concomitant]
  2. KIKLIN (BIXALOMER) [Concomitant]
  3. MUCOSTA (REBAMIPIDE) [Concomitant]
  4. PANALDINE (TICLOPIDINE HYDROCHLORIDE) [Concomitant]
  5. LIVALO (PITAVASTATIN CALCIUM) [Concomitant]
  6. TRAZENTA (LINAGLIPTIN) [Concomitant]
  7. FOSRENOL (LANTHANUM CARBONATE) [Concomitant]
  8. FERRIC CITRATE [Suspect]
     Active Substance: TETRAFERRIC TRICITRATE DECAHYDRATE
     Indication: HYPERPHOSPHATAEMIA
     Route: 048
     Dates: start: 20140625, end: 20140725
  9. ARTIST (CARVEDILOL) [Concomitant]
  10. OXAROL (MAXACALCITOL) [Concomitant]
  11. ANCARON (AMIODARONE HYDROCHLORIDE) [Concomitant]

REACTIONS (1)
  - Polycythaemia [None]

NARRATIVE: CASE EVENT DATE: 20140709
